FAERS Safety Report 6841531-4 (Version None)
Quarter: 2010Q3

REPORT INFORMATION
  Report Type: 
  Country: None (occurrence: None)
  Receive Date: 20100714
  Receipt Date: 20070709
  Transmission Date: 20110219
  Serious: No
  Sender: FDA-Public Use
  Company Number: US-PFIZER INC-2007057490

PATIENT
  Sex: Female
  Weight: 59.09 kg

DRUGS (3)
  1. CHANTIX [Suspect]
     Indication: SMOKING CESSATION THERAPY
     Dates: start: 20070630
  2. CARDIAC THERAPY [Concomitant]
  3. OTHER ANTI-ASTHMATICS, INHALANTS [Concomitant]
     Indication: ASTHMA

REACTIONS (1)
  - NAUSEA [None]
